FAERS Safety Report 7542347-6 (Version None)
Quarter: 2011Q2

REPORT INFORMATION
  Report Type: 
  Country: None (occurrence: None)
  Receive Date: 20110606
  Receipt Date: 20110520
  Transmission Date: 20111010
  Serious: Yes (Hospitalization)
  Sender: FDA-Public Use
  Company Number: NAP-11-04

PATIENT
  Age: 35 Year
  Sex: Male

DRUGS (1)
  1. NAPROXEN [Suspect]
     Indication: GASTRIC CANCER

REACTIONS (10)
  - DECREASED APPETITE [None]
  - RENAL FAILURE ACUTE [None]
  - HAEMODIALYSIS [None]
  - DIARRHOEA [None]
  - PYREXIA [None]
  - FATIGUE [None]
  - DEHYDRATION [None]
  - PANCYTOPENIA [None]
  - STOMATITIS [None]
  - NEUTROPHIL COUNT DECREASED [None]
